FAERS Safety Report 18868896 (Version 1)
Quarter: 2021Q1

REPORT INFORMATION
  Report Type: Spontaneous
  Country: ES (occurrence: ES)
  Receive Date: 20210209
  Receipt Date: 20210209
  Transmission Date: 20210420
  Serious: Yes (Life-Threatening, Hospitalization)
  Sender: FDA-Public Use
  Company Number: ES-PFIZER INC-2021098070

PATIENT
  Age: 57 Year
  Sex: Female

DRUGS (3)
  1. CREMOPHOR EL [Suspect]
     Active Substance: POLYOXYL 35 CASTOR OIL
     Indication: GENITAL NEOPLASM MALIGNANT FEMALE
     Dosage: UNK
     Route: 042
     Dates: start: 20201201, end: 20201201
  2. CARBOPLATIN. [Concomitant]
     Active Substance: CARBOPLATIN
     Indication: GENITAL NEOPLASM MALIGNANT FEMALE
     Dosage: UNK UNK, CYCLIC
     Route: 042
     Dates: start: 20201201
  3. PACLITAXEL. [Suspect]
     Active Substance: PACLITAXEL
     Indication: GENITAL NEOPLASM MALIGNANT FEMALE
     Dosage: 175 MG/M2, CYCLIC
     Route: 042
     Dates: start: 20201201, end: 20201201

REACTIONS (2)
  - Reaction to excipient [Recovered/Resolved]
  - Loss of consciousness [Recovered/Resolved]

NARRATIVE: CASE EVENT DATE: 20201201
